FAERS Safety Report 5349019-7 (Version None)
Quarter: 2007Q2

REPORT INFORMATION
  Report Type: 
  Country: None (occurrence: None)
  Receive Date: 20070516
  Receipt Date: 20070302
  Transmission Date: 20071010
  Serious: No
  Sender: FDA-Public Use
  Company Number: 200711479US

PATIENT
  Age: 47 Year
  Sex: Male

DRUGS (5)
  1. APIDRA [Suspect]
     Indication: DIABETES MELLITUS
     Dosage: 10 U
     Dates: start: 20060901
  2. INSULIN DETEMIR [Concomitant]
  3. SYMLIN [Concomitant]
  4. ZOCOR [Concomitant]
  5. LISINOPRIL [Concomitant]

REACTIONS (1)
  - MUSCLE SPASMS [None]
